FAERS Safety Report 4602196-5 (Version None)
Quarter: 2005Q2

REPORT INFORMATION
  Report Type: 
  Country: None (occurrence: None)
  Receive Date: 20050215
  Receipt Date: 20041014
  Transmission Date: 20051028
  Serious: No
  Sender: FDA-Public Use
  Company Number: MC200400702

PATIENT
  Sex: Male
  Weight: 97 kg

DRUGS (2)
  1. ANGIOMAX [Suspect]
     Indication: CORONARY ANGIOPLASTY
     Dosage: 14.3 ML (5MG/ML), BOLUS, IV BOLUS
     Route: 040
     Dates: start: 20040622, end: 20040602
  2. ANGIOMAX [Suspect]
     Dosage: 33 ML/HR (5MG/ML), INTRAVENOUS
     Route: 042
     Dates: start: 20040622, end: 20040622

REACTIONS (1)
  - THROMBOSIS [None]
